FAERS Safety Report 10801013 (Version 2)
Quarter: 2015Q1

REPORT INFORMATION
  Report Type: Spontaneous
  Country: US (occurrence: US)
  Receive Date: 20150216
  Receipt Date: 20150216
  Transmission Date: 20150721
  Serious: No
  Sender: FDA-Public Use
  Company Number: US-ALLERGAN-1420936US

PATIENT
  Age: 83 Year
  Sex: Female

DRUGS (8)
  1. LASIX [Concomitant]
     Active Substance: FUROSEMIDE
     Dosage: UNK
     Route: 048
  2. OMNARIS [Concomitant]
     Active Substance: CICLESONIDE
     Dosage: UNK
  3. COZAAR [Concomitant]
     Active Substance: LOSARTAN POTASSIUM
     Dosage: UNK UNK, BID
     Route: 048
  4. ZOCOR [Concomitant]
     Active Substance: SIMVASTATIN
     Dosage: UNK
     Route: 048
  5. HYDROXYCHLOROQUINE [Concomitant]
     Active Substance: HYDROXYCHLOROQUINE
     Dosage: UNK
     Route: 048
  6. NORVASC [Concomitant]
     Active Substance: AMLODIPINE BESYLATE
     Dosage: UNK
     Route: 048
  7. CLARITIN [Concomitant]
     Active Substance: LORATADINE
     Dosage: UNK
     Route: 048
  8. RESTASIS [Suspect]
     Active Substance: CYCLOSPORINE
     Indication: DRY EYE
     Dosage: 2 UNK, UNK
     Route: 047
     Dates: start: 201409

REACTIONS (5)
  - Facial pain [Recovering/Resolving]
  - Sinus headache [Recovering/Resolving]
  - Upper respiratory tract congestion [Recovering/Resolving]
  - Ear pain [Recovering/Resolving]
  - Nasal congestion [Recovering/Resolving]
